FAERS Safety Report 5259461-0 (Version None)
Quarter: 2007Q1

REPORT INFORMATION
  Report Type: 
  Country: None (occurrence: None)
  Receive Date: 20070305
  Receipt Date: 20070219
  Transmission Date: 20070707
  Serious: Yes (Death, Other)
  Sender: FDA-Public Use
  Company Number: 2006-03120

PATIENT
  Age: 59 Year
  Sex: Male
  Weight: 101.1 kg

DRUGS (17)
  1. VELCADE [Suspect]
     Indication: MULTIPLE MYELOMA
     Dosage: 2.60 MG, INTRAVENOUS
     Route: 042
     Dates: start: 20061115, end: 20061127
  2. THALIDOMIDE [Concomitant]
  3. WARFARIN SODIUM [Concomitant]
  4. NYSTATIN-HC CREAM (HYDROCORTISONE, CHLORHEXIDINE HYDROCHLORIDE, NYSTAT [Concomitant]
  5. AMARYL [Concomitant]
  6. LASIX [Concomitant]
  7. LABETALOL HCL [Concomitant]
  8. COZAAR [Concomitant]
  9. ISORDIL [Concomitant]
  10. EFFEXOR XR [Concomitant]
  11. LOTREL [Concomitant]
  12. ALLEGRA [Concomitant]
  13. ASPIRIN [Concomitant]
  14. LIPITOR [Concomitant]
  15. BACTRIM DS [Concomitant]
  16. LANTUS [Concomitant]
  17. POTASSIUM CHLORIDE [Concomitant]

REACTIONS (6)
  - CARDIAC ARREST [None]
  - DYSPNOEA [None]
  - HYPERHIDROSIS [None]
  - MYOCARDIAL INFARCTION [None]
  - PROTHROMBIN TIME PROLONGED [None]
  - PULMONARY EMBOLISM [None]
